FAERS Safety Report 17202531 (Version 3)
Quarter: 2020Q1

REPORT INFORMATION
  Report Type: Spontaneous
  Country: US (occurrence: US)
  Receive Date: 20191226
  Receipt Date: 20200214
  Transmission Date: 20200409
  Serious: Yes (Other)
  Sender: FDA-Public Use
  Company Number: US-PFIZER INC-2019552221

PATIENT
  Age: 72 Year
  Sex: Female
  Weight: 50.17 kg

DRUGS (1)
  1. PREMARIN [Suspect]
     Active Substance: ESTROGENS, CONJUGATED
     Indication: HORMONE THERAPY
     Dosage: 1.25 MG, 1X/DAY
     Route: 048

REACTIONS (6)
  - Weight increased [Unknown]
  - Atrial fibrillation [Unknown]
  - Malaise [Unknown]
  - Cataract [Recovered/Resolved]
  - Body height decreased [Unknown]
  - Pneumonia [Unknown]
